FAERS Safety Report 5313746-8 (Version None)
Quarter: 2007Q2

REPORT INFORMATION
  Report Type: 
  Country: None (occurrence: None)
  Receive Date: 20070426
  Receipt Date: 20070417
  Transmission Date: 20071010
  Serious: Yes (Hospitalization)
  Sender: FDA-Public Use
  Company Number: 6032249

PATIENT
  Age: 80 Year
  Sex: Male

DRUGS (7)
  1. LODOZ 5 MG/6.25 MG (TABLET)  (HYDROCHLORIDE, BISOPROLOL FUMARATE) [Suspect]
     Indication: HYPERTENSION
     Dosage: 1 DOSAGE FORMS (1 DOSAGE FORMS, 1 D) ORAL
     Route: 048
     Dates: end: 20070322
  2. INEXIUM (GASTRO-RESISTANT TABLET) (ESOMEPRAZOLE MAGNESIUM) [Suspect]
     Indication: DRUG USE FOR UNKNOWN INDICATION
     Dosage: 20 MG (20 MG, 1 D) ORAL
     Route: 048
     Dates: start: 20070227, end: 20070322
  3. ATORVASTATIN CALCIUM [Concomitant]
  4. ZANIDIP (LERCANIDIPINE HYDROCHLORIDE) [Concomitant]
  5. PERINDOPRIL ERBUMINE [Concomitant]
  6. TANAKAN (GINKGO BILOBA EXTRACT) [Concomitant]
  7. PLAVIX [Concomitant]

REACTIONS (6)
  - APATHY [None]
  - BLOOD POTASSIUM INCREASED [None]
  - DRUG INTERACTION [None]
  - FALL [None]
  - HYPONATRAEMIA [None]
  - PSYCHOMOTOR SKILLS IMPAIRED [None]
